FAERS Safety Report 11133516 (Version 2)
Quarter: 2016Q2

REPORT INFORMATION
  Report Type: Spontaneous
  Country: TW (occurrence: TW)
  Receive Date: 20150523
  Receipt Date: 20160427
  Transmission Date: 20160815
  Serious: Yes (Hospitalization)
  Sender: FDA-Public Use
  Company Number: TW-ALKEM-001008

PATIENT
  Age: 23 Year
  Sex: Male

DRUGS (2)
  1. QUETIAPINE/QUETIAPINE FUMARATE [Suspect]
     Active Substance: QUETIAPINE FUMARATE
     Indication: BIPOLAR I DISORDER
     Dosage: ALSO RECEIVED 200 MG/DAY OF QUETIAPINE WHICH WAS TITRATED UP TO 400 MG/DAY.
  2. VALPROIC ACID. [Suspect]
     Active Substance: VALPROIC ACID
     Indication: BIPOLAR I DISORDER
     Dosage: ALSO RECEIVED 500 MG/DAY OF VALPROIC ACID WHICH WAS TITRATED UP TO 1000 MG/DAY.

REACTIONS (10)
  - Neutropenia [Recovering/Resolving]
  - Psychotic disorder [None]
  - Treatment noncompliance [None]
  - Leukopenia [Recovering/Resolving]
  - Agranulocytosis [None]
  - Thrombocytopenia [Recovering/Resolving]
  - Extrapyramidal disorder [None]
  - Toxicity to various agents [Recovering/Resolving]
  - Upper respiratory tract infection [Recovering/Resolving]
  - Mania [None]
